FAERS Safety Report 13330120 (Version 1)
Quarter: 2017Q1

REPORT INFORMATION
  Report Type: Spontaneous
  Country: US (occurrence: US)
  Receive Date: 20170313
  Receipt Date: 20170313
  Transmission Date: 20170428
  Serious: No
  Sender: FDA-Public Use
  Company Number: US-ASTRAZENECA-2017SE25709

PATIENT
  Age: 69 Year
  Sex: Female
  Weight: 97.5 kg

DRUGS (1)
  1. BYDUREON [Suspect]
     Active Substance: EXENATIDE
     Indication: TYPE 2 DIABETES MELLITUS
     Route: 058
     Dates: start: 201610

REACTIONS (5)
  - Injection site mass [Unknown]
  - Injection site discolouration [Recovered/Resolved]
  - Nervousness [Unknown]
  - Injection site extravasation [Unknown]
  - Nasopharyngitis [Unknown]
